FAERS Safety Report 5710501-1 (Version None)
Quarter: 2008Q2

REPORT INFORMATION
  Report Type: 
  Country: None (occurrence: None)
  Receive Date: 20080414
  Receipt Date: 20080328
  Transmission Date: 20081010
  Serious: Yes (Other)
  Sender: FDA-Public Use
  Company Number: 2008PL000042

PATIENT
  Age: 58 Year
  Sex: Female

DRUGS (3)
  1. AZATHIOPRINE [Suspect]
     Indication: SYSTEMIC LUPUS ERYTHEMATOSUS
     Dosage: 50 MG,QD;PO
     Route: 048
  2. PREDNISOLONE [Suspect]
     Indication: SYSTEMIC LUPUS ERYTHEMATOSUS
     Dosage: 17 MG;QD;PO
     Route: 048
  3. INSULIN [Concomitant]

REACTIONS (7)
  - ANTINUCLEAR ANTIBODY POSITIVE [None]
  - BLOOD GLUCOSE INCREASED [None]
  - GLYCOSYLATED HAEMOGLOBIN INCREASED [None]
  - LUNG DISORDER [None]
  - MASS [None]
  - MYCOBACTERIUM AVIUM COMPLEX INFECTION [None]
  - WHITE BLOOD CELL COUNT DECREASED [None]
